FAERS Safety Report 5296458-9 (Version None)
Quarter: 2007Q1

REPORT INFORMATION
  Report Type: 
  Country: None (occurrence: None)
  Receive Date: 20070201
  Receipt Date: 20061007
  Transmission Date: 20070707
  Serious: No
  Sender: FDA-Public Use
  Company Number: 2006PV022687

PATIENT
  Age: 48 Year
  Sex: Female
  Weight: 79.8331 kg

DRUGS (4)
  1. BYETTA [Suspect]
     Indication: DIABETES MELLITUS NON-INSULIN-DEPENDENT
     Dosage: 5 MCG; BID
     Dates: start: 20060901
  2. BYETTA [Suspect]
     Dosage: 10 MCG; 5 MCG : BID
     Dates: start: 20050101, end: 20060101
  3. BYETTA [Suspect]
     Dosage: 10 MCG; 5 MCG : BID
     Dates: start: 20060101, end: 20060901
  4. METFORMIN HCL [Concomitant]

REACTIONS (4)
  - BLOOD GLUCOSE DECREASED [None]
  - DIZZINESS [None]
  - TREMOR [None]
  - WEIGHT DECREASED [None]
